FAERS Safety Report 14145510 (Version 2)
Quarter: 2018Q3

REPORT INFORMATION
  Report Type: Spontaneous
  Country: GB (occurrence: GB)
  Receive Date: 20171031
  Receipt Date: 20180824
  Transmission Date: 20181010
  Serious: Yes (Other)
  Sender: FDA-Public Use
  Company Number: GB-PFIZER INC-2017464554

PATIENT
  Age: 80 Year
  Sex: Male
  Weight: 95.25 kg

DRUGS (4)
  1. FUSIDIC ACID [Concomitant]
     Active Substance: FUSIDIC ACID
     Dosage: APPLY 3 TO 4 TIMES DAILY
     Dates: start: 20170807
  2. PRAVASTATIN. [Concomitant]
     Active Substance: PRAVASTATIN
     Dosage: 10 MG, 1X/DAY (AT NIGHT)
     Dates: start: 20171018
  3. ATORVASTATIN [Suspect]
     Active Substance: ATORVASTATIN
     Indication: HYPERCHOLESTEROLAEMIA
     Dosage: 10 MG, UNK
     Route: 048
     Dates: start: 20161004, end: 20161009
  4. CHLORDIAZEPOXIDE. [Concomitant]
     Active Substance: CHLORDIAZEPOXIDE
     Dosage: 10 MG, 1X/DAY (AT NIGHT)
     Dates: start: 20170811, end: 20171018

REACTIONS (1)
  - Disorientation [Recovered/Resolved]
